FAERS Safety Report 8808569 (Version 1)
Quarter: 2012Q4

REPORT INFORMATION
  Report Type: 
  Country: US (occurrence: US)
  Receive Date: 20120926
  Receipt Date: 20120926
  Transmission Date: 20130627
  Serious: Yes (Death)
  Sender: FDA-Public Use
  Company Number: PHEH2012US018583

PATIENT
  Sex: Female
  Weight: 58.06 kg

DRUGS (2)
  1. GLEEVEC [Suspect]
     Dosage: UNK UKN, UNK
  2. GLEEVEC [Suspect]
     Dosage: UNK UKN, UNK

REACTIONS (4)
  - Neoplasm malignant [Fatal]
  - Pain [Unknown]
  - Nausea [Unknown]
  - Rash [Unknown]
